FAERS Safety Report 10459276 (Version 2)
Quarter: 2014Q4

REPORT INFORMATION
  Report Type: Spontaneous
  Country: US (occurrence: US)
  Receive Date: 20140917
  Receipt Date: 20141010
  Transmission Date: 20150528
  Serious: Yes (Death, Hospitalization, Other)
  Sender: FDA-Public Use
  Company Number: US-ELI_LILLY_AND_COMPANY-US201409005774

PATIENT
  Sex: Male
  Weight: 70.75 kg

DRUGS (14)
  1. CYRAMZA [Suspect]
     Active Substance: RAMUCIRUMAB
     Indication: OESOPHAGEAL CARCINOMA
     Dosage: 618 MG, EVERY 14 DAYS
     Route: 042
     Dates: start: 20140903
  2. METFORMIN [Concomitant]
     Active Substance: METFORMIN HYDROCHLORIDE
  3. HEPARIN [Concomitant]
     Active Substance: HEPARIN SODIUM
  4. ZOFRAN                             /00955301/ [Concomitant]
     Active Substance: ONDANSETRON HYDROCHLORIDE
  5. AZITHROMYCIN [Concomitant]
     Active Substance: AZITHROMYCIN ANHYDROUS
  6. LABETALOL [Concomitant]
     Active Substance: LABETALOL\LABETALOL HYDROCHLORIDE
  7. SIMVASTATIN. [Concomitant]
     Active Substance: SIMVASTATIN
  8. CEFTRIAXON [Concomitant]
     Active Substance: CEFTRIAXONE
  9. COLACE [Concomitant]
     Active Substance: DOCUSATE SODIUM
  10. MAGNESIUM SULFATE. [Concomitant]
     Active Substance: MAGNESIUM SULFATE
  11. METOPROLOL [Concomitant]
     Active Substance: METOPROLOL
  12. DRONABINOL. [Concomitant]
     Active Substance: DRONABINOL
  13. PEPCID [Concomitant]
     Active Substance: FAMOTIDINE
  14. KCL [Concomitant]
     Active Substance: POTASSIUM CHLORIDE

REACTIONS (3)
  - Malignant neoplasm progression [Unknown]
  - Aspiration [Fatal]
  - Respiratory failure [Fatal]
